FAERS Safety Report 12548590 (Version 5)
Quarter: 2016Q3

REPORT INFORMATION
  Report Type: Report from Study
  Country: US (occurrence: US)
  Receive Date: 20160712
  Receipt Date: 20160919
  Transmission Date: 20161109
  Serious: Yes (Hospitalization)
  Sender: FDA-Public Use
  Company Number: US-JNJFOC-20160705728

PATIENT
  Age: 18 Year
  Sex: Female
  Weight: 70.7 kg

DRUGS (5)
  1. HUMIRA [Concomitant]
     Active Substance: ADALIMUMAB
     Route: 065
  2. REMICADE [Suspect]
     Active Substance: INFLIXIMAB
     Indication: INFLAMMATORY BOWEL DISEASE
     Route: 042
     Dates: start: 20100724, end: 20101217
  3. ZYRTEC [Concomitant]
     Active Substance: CETIRIZINE HYDROCHLORIDE
     Route: 065
  4. VITAMIN D [Concomitant]
     Active Substance: CHOLECALCIFEROL
     Route: 065
  5. OSCAL D [Concomitant]
     Active Substance: CALCIUM CARBONATE\CHOLECALCIFEROL
     Route: 065

REACTIONS (1)
  - Viral myocarditis [Recovered/Resolved]

NARRATIVE: CASE EVENT DATE: 20160218
